FAERS Safety Report 21104904 (Version 2)
Quarter: 2022Q3

REPORT INFORMATION
  Report Type: Other
  Country: US (occurrence: None)
  Receive Date: 20220720
  Receipt Date: 20220722
  Transmission Date: 20221026
  Serious: Yes (Hospitalization, Other)
  Sender: FDA-Public Use
  Company Number: US-ROCHE-3131975

PATIENT
  Age: 55 Year
  Sex: Female
  Weight: 75.818 kg

DRUGS (7)
  1. XOLAIR [Suspect]
     Active Substance: OMALIZUMAB
     Indication: Asthma
     Dosage: 2 SHOTS 150MG TOTAL ;ONGOING: NO
     Route: 058
     Dates: end: 201910
  2. XOLAIR [Suspect]
     Active Substance: OMALIZUMAB
  3. XOLAIR [Suspect]
     Active Substance: OMALIZUMAB
     Indication: Asthma
     Dosage: YES
     Route: 058
     Dates: start: 202011
  4. XOLAIR [Suspect]
     Active Substance: OMALIZUMAB
  5. BACTRIM [Suspect]
     Active Substance: SULFAMETHOXAZOLE\TRIMETHOPRIM
     Indication: Product used for unknown indication
     Route: 065
     Dates: start: 2019
  6. PROLIA [Concomitant]
     Active Substance: DENOSUMAB
     Route: 058
  7. KLONOPIN [Concomitant]
     Active Substance: CLONAZEPAM
     Indication: Anxiety
     Route: 048

REACTIONS (10)
  - Chronic obstructive pulmonary disease [Recovered/Resolved]
  - Spinal fracture [Recovered/Resolved]
  - Anaphylactic reaction [Unknown]
  - Weight increased [Not Recovered/Not Resolved]
  - Body height decreased [Not Recovered/Not Resolved]
  - Cystitis [Recovered/Resolved]
  - Urticaria [Recovered/Resolved]
  - Blood cholesterol decreased [Recovered/Resolved]
  - Blood cholesterol increased [Not Recovered/Not Resolved]
  - Anxiety [Not Recovered/Not Resolved]

NARRATIVE: CASE EVENT DATE: 20200101
